FAERS Safety Report 7511878-7 (Version None)
Quarter: 2011Q2

REPORT INFORMATION
  Report Type: 
  Country: None (occurrence: None)
  Receive Date: 20110531
  Receipt Date: 20110525
  Transmission Date: 20111010
  Serious: Yes (Hospitalization)
  Sender: FDA-Public Use
  Company Number: FR-GENZYME-CAMP-1001642

PATIENT
  Sex: Female
  Weight: 60 kg

DRUGS (4)
  1. CAMPATH [Suspect]
     Indication: APLASIA
  2. THYMOGLOBULIN [Suspect]
     Indication: APLASIA
  3. THYMOGLOBULIN [Suspect]
     Indication: STEM CELL TRANSPLANT
     Dosage: UNK
     Route: 065
  4. CAMPATH [Suspect]
     Indication: STEM CELL TRANSPLANT
     Dosage: 20 MG, QD
     Route: 042
     Dates: start: 20101211, end: 20101211

REACTIONS (4)
  - ABDOMINAL PAIN UPPER [None]
  - RASH [None]
  - DRUG ADMINISTRATION ERROR [None]
  - HYPERSENSITIVITY [None]
